FAERS Safety Report 13083827 (Version 2)
Quarter: 2017Q1

REPORT INFORMATION
  Report Type: Report from Study
  Country: BE (occurrence: BE)
  Receive Date: 20170104
  Receipt Date: 20170216
  Transmission Date: 20170428
  Serious: Yes (Death, Other)
  Sender: FDA-Public Use
  Company Number: BE-AMGEN-BELNI2016185725

PATIENT
  Age: 71 Year
  Sex: Male

DRUGS (8)
  1. LORAZEPAM. [Concomitant]
     Active Substance: LORAZEPAM
     Dosage: 2.5 MG, QD
     Route: 048
     Dates: start: 2012, end: 201702
  2. DEXAMETHASONE. [Concomitant]
     Active Substance: DEXAMETHASONE
     Dosage: 20 MG, UNK
     Route: 048
     Dates: start: 201604, end: 201702
  3. SIMVASTATIN. [Concomitant]
     Active Substance: SIMVASTATIN
     Dosage: UNK
     Dates: end: 201702
  4. MS DIRECT [Concomitant]
     Active Substance: MORPHINE SULFATE
     Dosage: 10 MG, BID
     Route: 048
     Dates: start: 201609, end: 201702
  5. GLUCOPHAGE [Concomitant]
     Active Substance: METFORMIN HYDROCHLORIDE
     Dosage: UNK
     Dates: end: 201702
  6. ASAFLOW [Concomitant]
     Active Substance: ASPIRIN
     Dosage: 80 MG, QD
     Route: 048
     Dates: start: 2012, end: 201702
  7. CARFILZOMIB [Suspect]
     Active Substance: CARFILZOMIB
     Indication: PLASMA CELL MYELOMA
     Dosage: UNK
     Route: 065
     Dates: end: 20161130
  8. DURAGESIC [Concomitant]
     Active Substance: FENTANYL
     Dosage: 25 MUG, 72 HOUR, DERMAL
     Dates: start: 201609, end: 201702

REACTIONS (1)
  - Death [Fatal]

NARRATIVE: CASE EVENT DATE: 20161208
